FAERS Safety Report 15525075 (Version 1)
Quarter: 2018Q4

REPORT INFORMATION
  Report Type: Spontaneous
  Country: FR (occurrence: FR)
  Receive Date: 20181019
  Receipt Date: 20181019
  Transmission Date: 20190205
  Serious: Yes (Hospitalization)
  Sender: FDA-Public Use
  Company Number: FR-TEVA-2018-FR-966226

PATIENT
  Age: 20 Year
  Sex: Male
  Weight: 97 kg

DRUGS (6)
  1. METHYLPREDNISOLONE. [Concomitant]
     Active Substance: METHYLPREDNISOLONE
     Route: 042
     Dates: start: 20170217, end: 20170516
  2. DOCETAXEL ACCORD [Concomitant]
     Active Substance: DOCETAXEL
     Route: 042
     Dates: start: 20170217, end: 20170331
  3. FLUOROURACILE [Concomitant]
     Active Substance: FLUOROURACIL
     Route: 042
     Dates: start: 20170217, end: 20170331
  4. ONDANSETRON [Concomitant]
     Active Substance: ONDANSETRON
     Route: 048
     Dates: start: 20170217, end: 20170516
  5. EMEND [Concomitant]
     Active Substance: APREPITANT
     Route: 048
     Dates: start: 20170217, end: 20170516
  6. CISPLATINE [Suspect]
     Active Substance: CISPLATIN
     Indication: NASOPHARYNGEAL CANCER
     Route: 042
     Dates: start: 20170217, end: 20170516

REACTIONS (1)
  - Acute kidney injury [Recovered/Resolved]

NARRATIVE: CASE EVENT DATE: 20170522
